FAERS Safety Report 24200653 (Version 1)
Quarter: 2024Q3

REPORT INFORMATION
  Report Type: Spontaneous
  Country: US (occurrence: US)
  Receive Date: 20240812
  Receipt Date: 20240812
  Transmission Date: 20241016
  Serious: No
  Sender: ANI
  Company Number: US-ANIPHARMA-2024-US-038258

PATIENT
  Sex: Male

DRUGS (20)
  1. CORTICOTROPIN [Suspect]
     Active Substance: CORTICOTROPIN
     Indication: Multiple sclerosis
     Dosage: 80 UNITS DAILY
     Route: 030
     Dates: start: 20231215
  2. LEVOTHYROXINE [Concomitant]
     Active Substance: LEVOTHYROXINE\LEVOTHYROXINE SODIUM
  3. MOTEGRITY [Concomitant]
     Active Substance: PRUCALOPRIDE SUCCINATE
  4. OCREVUS [Concomitant]
     Active Substance: OCRELIZUMAB
  5. OXYCODONE [Concomitant]
     Active Substance: OXYCODONE
  6. PREDNISONE [Concomitant]
     Active Substance: PREDNISONE
  7. TAMSULOSIN [Concomitant]
     Active Substance: TAMSULOSIN
  8. TESTOSTERONE [Concomitant]
     Active Substance: TESTOSTERONE
  9. TIZANIDINE [Concomitant]
     Active Substance: TIZANIDINE
  10. TRAZODONE [Concomitant]
     Active Substance: TRAZODONE HYDROCHLORIDE
  11. VITAMIN D2 [Concomitant]
     Active Substance: ERGOCALCIFEROL
  12. BOTOX [Concomitant]
     Active Substance: ONABOTULINUMTOXINA
  13. MAGNESIUM [Concomitant]
     Active Substance: MAGNESIUM
  14. BUPRENORPHINE [Concomitant]
     Active Substance: BUPRENORPHINE
  15. BUPROPION [Concomitant]
     Active Substance: BUPROPION
  16. ADDERALL XR [Concomitant]
     Active Substance: AMPHETAMINE ASPARTATE\AMPHETAMINE SULFATE\DEXTROAMPHETAMINE SACCHARATE\DEXTROAMPHETAMINE SULFATE
  17. CYANOCOBALAMIN [Concomitant]
     Active Substance: CYANOCOBALAMIN
  18. DIAZEPAM [Concomitant]
     Active Substance: DIAZEPAM
  19. ESCITALOPRAM [Concomitant]
     Active Substance: ESCITALOPRAM OXALATE
  20. JARDIANCE [Concomitant]
     Active Substance: EMPAGLIFLOZIN

REACTIONS (1)
  - Oedema peripheral [Recovered/Resolved]
